FAERS Safety Report 7821541-0 (Version None)
Quarter: 2011Q4

REPORT INFORMATION
  Report Type: 
  Country: None (occurrence: None)
  Receive Date: 20111018
  Receipt Date: 20111011
  Transmission Date: 20120403
  Serious: Yes (Other)
  Sender: FDA-Public Use
  Company Number: US-BAXTER-2011BH032142

PATIENT
  Age: 56 Year
  Sex: Female

DRUGS (2)
  1. CYCLOPHOSPHAMIDE [Suspect]
     Indication: ACTINIC KERATOSIS
     Route: 065
  2. CYCLOPHOSPHAMIDE [Suspect]
     Indication: RETINITIS
     Route: 065

REACTIONS (1)
  - HERPES ZOSTER [None]
